FAERS Safety Report 8124358-5 (Version None)
Quarter: 2012Q1

REPORT INFORMATION
  Report Type: 
  Country: None (occurrence: None)
  Receive Date: 20120209
  Receipt Date: 20120131
  Transmission Date: 20120608
  Serious: Yes (Other)
  Sender: FDA-Public Use
  Company Number: AU-ELI_LILLY_AND_COMPANY-AU201201009049

PATIENT
  Age: 75 Year
  Sex: Female

DRUGS (2)
  1. ZYPREXA [Suspect]
     Dosage: 5 MG, EACH MORNING
  2. ZYPREXA [Suspect]
     Dosage: 10 MG, EACH EVENING

REACTIONS (2)
  - DEMENTIA [None]
  - DELIRIUM [None]
